FAERS Safety Report 9499655 (Version 1)
Quarter: 2013Q3

REPORT INFORMATION
  Report Type: Spontaneous
  Country: US (occurrence: None)
  Receive Date: 20130903
  Receipt Date: 20130903
  Transmission Date: 20140515
  Serious: Yes (Other)
  Sender: FDA-Public Use
  Company Number: None

PATIENT
  Age: 15 Year
  Sex: Male
  Weight: 93 kg

DRUGS (1)
  1. LAMOTRIGINE [Suspect]
     Indication: PETIT MAL EPILEPSY
     Dosage: 100MG, 1QAM 2QPM, BY MOUTH
     Route: 048
     Dates: start: 201305

REACTIONS (3)
  - Convulsion [None]
  - Confusional state [None]
  - Product substitution issue [None]
